FAERS Safety Report 8460599-5 (Version None)
Quarter: 2012Q2

REPORT INFORMATION
  Report Type: 
  Country: None (occurrence: None)
  Receive Date: 20120622
  Receipt Date: 20120613
  Transmission Date: 20120825
  Serious: Yes (Other)
  Sender: FDA-Public Use
  Company Number: US-ASTRAZENECA-2012SE38462

PATIENT
  Age: 48 Year
  Sex: Female

DRUGS (3)
  1. VITAMIN E [Concomitant]
     Dosage: DAILY
     Route: 048
  2. PRIMODOS [Concomitant]
     Dosage: DAILY
     Route: 048
  3. NEXIUM [Suspect]
     Route: 048

REACTIONS (10)
  - NAUSEA [None]
  - DRUG DOSE OMISSION [None]
  - HEPATITIS C [None]
  - DECREASED APPETITE [None]
  - WEIGHT DECREASED [None]
  - ABDOMINAL DISTENSION [None]
  - APHAGIA [None]
  - DYSPEPSIA [None]
  - ABDOMINAL PAIN UPPER [None]
  - ABDOMINAL DISCOMFORT [None]
